FAERS Safety Report 12275826 (Version 1)
Quarter: 2016Q2

REPORT INFORMATION
  Report Type: Spontaneous
  Country: ES (occurrence: ES)
  Receive Date: 20160418
  Receipt Date: 20160418
  Transmission Date: 20160815
  Serious: Yes (Other)
  Sender: FDA-Public Use
  Company Number: ES-SHIRE-ES201604169

PATIENT
  Age: 6 Year
  Sex: Male

DRUGS (1)
  1. ELVANSE [Suspect]
     Active Substance: LISDEXAMFETAMINE DIMESYLATE
     Indication: ATTENTION DEFICIT/HYPERACTIVITY DISORDER
     Dosage: 30 MG, 1X/DAY:QD
     Route: 048
     Dates: start: 201603, end: 201603

REACTIONS (8)
  - Tremor [Recovered/Resolved]
  - Anxiety [Recovered/Resolved]
  - Daydreaming [Recovered/Resolved]
  - Verbigeration [Recovered/Resolved]
  - Stereotypy [Recovered/Resolved]
  - Tic [Recovered/Resolved]
  - Dyskinesia [Recovered/Resolved]
  - Palpitations [Recovered/Resolved]

NARRATIVE: CASE EVENT DATE: 201603
